FAERS Safety Report 16055395 (Version 3)
Quarter: 2019Q2

REPORT INFORMATION
  Report Type: Spontaneous
  Country: US (occurrence: US)
  Receive Date: 20190311
  Receipt Date: 20190409
  Transmission Date: 20190711
  Serious: Yes (Other)
  Sender: FDA-Public Use
  Company Number: US-009507513-1903USA003373

PATIENT
  Age: 66 Year
  Sex: Male
  Weight: 98.4 kg

DRUGS (8)
  1. KEYTRUDA [Suspect]
     Active Substance: PEMBROLIZUMAB
     Dosage: UNK
     Dates: start: 20190325
  2. CISPLATIN. [Suspect]
     Active Substance: CISPLATIN
     Indication: CHOLANGIOCARCINOMA
     Dosage: 50 MILLIGRAM; 3 CYCLES
     Route: 042
     Dates: start: 20161214, end: 20170201
  3. FLUOROURACIL (+) LEUCOVORIN CALCIUM (+) OXALIPLATIN [Suspect]
     Active Substance: FLUOROURACIL\LEUCOVORIN CALCIUM\OXALIPLATIN
     Indication: CHOLANGIOCARCINOMA
     Dosage: OXALIPLATIN: 175 MILLIGRAM, LEUCOVORIN: 950 MILLIGRAM, 5-FLURO URACIL: 5000 MILLIGRAM; 3CYCLES
     Route: 042
     Dates: start: 20170215, end: 20170315
  4. KEYTRUDA [Suspect]
     Active Substance: PEMBROLIZUMAB
     Indication: CHOLANGIOCARCINOMA
     Dosage: 200 MILLIGRAM, Q3W
     Route: 042
     Dates: start: 20171027, end: 20190227
  5. GEMZAR [Suspect]
     Active Substance: GEMCITABINE HYDROCHLORIDE
     Indication: CHOLANGIOCARCINOMA
     Dosage: 200 MILLIGRAM
     Route: 042
     Dates: start: 20161214, end: 20170201
  6. FLUOROURACIL (+) IRINOTECAN HYDROCHLORIDE (+) LEUCOVORIN CALCIUM [Suspect]
     Active Substance: FLUOROURACIL\IRINOTECAN\LEUCOVORIN
     Indication: CHOLANGIOCARCINOMA
     Dosage: IRINOTECAN HYDROCHLORIDE: 380 MILLIGRAM, LEUCOVORIN: 850 MILLIGRAM, 5-FLUROURACIL: 5050 MILLIGRAM, 1
     Dates: start: 20170627, end: 20170627
  7. IRINOTECAN HYDROCHLORIDE. [Suspect]
     Active Substance: IRINOTECAN HYDROCHLORIDE
     Indication: CHOLANGIOCARCINOMA
     Dosage: 380 MILLIGRAM
     Route: 042
     Dates: start: 20170627, end: 20170627
  8. XARELTO [Concomitant]
     Active Substance: RIVAROXABAN
     Indication: TUMOUR THROMBOSIS

REACTIONS (4)
  - Off label use [Unknown]
  - Pancytopenia [Not Recovered/Not Resolved]
  - Neutropenia [Unknown]
  - Acute myeloid leukaemia [Unknown]

NARRATIVE: CASE EVENT DATE: 20171027
